FAERS Safety Report 11583303 (Version 1)
Quarter: 2015Q4

REPORT INFORMATION
  Report Type: Spontaneous
  Country: US (occurrence: US)
  Receive Date: 20151001
  Receipt Date: 20151001
  Transmission Date: 20160304
  Serious: Yes (Hospitalization)
  Sender: FDA-Public Use
  Company Number: US-BAYER-2015-428764

PATIENT
  Age: 29 Year
  Sex: Female
  Weight: 61.22 kg

DRUGS (5)
  1. LORAZEPAM. [Concomitant]
     Active Substance: LORAZEPAM
     Indication: ANXIETY
     Dosage: UNK
     Dates: start: 2013, end: 2014
  2. MIRENA [Suspect]
     Active Substance: LEVONORGESTREL
     Indication: MENORRHAGIA
  3. MIRENA [Suspect]
     Active Substance: LEVONORGESTREL
     Indication: CONTRACEPTION
     Dosage: 20 MCG/24HR, CONT
     Route: 015
     Dates: start: 20120703, end: 20150514
  4. LORAZEPAM. [Concomitant]
     Active Substance: LORAZEPAM
     Indication: ANTIDEPRESSANT THERAPY
  5. CALCIPOTRIENE. [Concomitant]
     Active Substance: CALCIPOTRIENE
     Indication: PSORIASIS
     Dosage: UNK
     Dates: start: 200108

REACTIONS (11)
  - Embedded device [None]
  - Uterine cervical pain [None]
  - Abdominal pain lower [None]
  - Mental disorder [None]
  - Genital haemorrhage [None]
  - Pelvic pain [None]
  - Device breakage [None]
  - Abdominal distension [None]
  - Device issue [None]
  - Device difficult to use [None]
  - General physical health deterioration [None]

NARRATIVE: CASE EVENT DATE: 201207
